FAERS Safety Report 10466047 (Version 8)
Quarter: 2015Q1

REPORT INFORMATION
  Report Type: Spontaneous
  Country: US (occurrence: US)
  Receive Date: 20140922
  Receipt Date: 20150211
  Transmission Date: 20150720
  Serious: Yes (Hospitalization)
  Sender: FDA-Public Use
  Company Number: US-UNITED THERAPEUTICS-UNT-2014-007569

PATIENT
  Age: 73 Year
  Sex: Female
  Weight: 67.12 kg

DRUGS (8)
  1. XARELTO [Suspect]
     Active Substance: RIVAROXABAN
     Indication: PRODUCT USED FOR UNKNOWN INDICATION
  2. TRACLEER [Concomitant]
     Active Substance: BOSENTAN\BOSENTAN MONOHYDRATE
     Indication: PRODUCT USED FOR UNKNOWN INDICATION
  3. REVATIO [Concomitant]
     Active Substance: SILDENAFIL CITRATE
     Indication: PRODUCT USED FOR UNKNOWN INDICATION
  4. TYVASO [Suspect]
     Active Substance: TREPROSTINIL
     Indication: PULMONARY ARTERIAL HYPERTENSION
     Dosage: 18 TO 54 ?G, QID
     Dates: start: 20140328
  5. ASPIRIN. [Concomitant]
     Active Substance: ASPIRIN
     Indication: PRODUCT USED FOR UNKNOWN INDICATION
  6. TYVASO [Suspect]
     Active Substance: TREPROSTINIL
     Dosage: 18 TO 54 ?G, QID
     Dates: start: 20140401
  7. TYVASO [Suspect]
     Active Substance: TREPROSTINIL
     Dosage: 18 TO 54 ?G, QID
     Dates: start: 20140401
  8. TYVASO [Suspect]
     Active Substance: TREPROSTINIL
     Dosage: 18 TO 54 ?G, QID
     Dates: start: 20140401

REACTIONS (9)
  - Haemorrhage [Recovered/Resolved]
  - Drug dose omission [Unknown]
  - Therapy cessation [Unknown]
  - Treatment noncompliance [Unknown]
  - Anaemia [Unknown]
  - Epistaxis [Recovered/Resolved]
  - Hypotension [Unknown]
  - Drug ineffective [Unknown]
  - Throat irritation [Unknown]

NARRATIVE: CASE EVENT DATE: 2014
